FAERS Safety Report 9436680 (Version 2)
Quarter: 2013Q3

REPORT INFORMATION
  Report Type: Spontaneous
  Country: ES (occurrence: ES)
  Receive Date: 20130802
  Receipt Date: 20130930
  Transmission Date: 20140515
  Serious: Yes (Other)
  Sender: FDA-Public Use
  Company Number: ES-AMGEN-ESPSP2013053394

PATIENT
  Age: 46 Year
  Sex: Female

DRUGS (7)
  1. PROLIA [Suspect]
     Indication: PELVIC FRACTURE
     Dosage: 60 MG, UNK
     Route: 065
  2. SEVELAMER [Concomitant]
     Dosage: 2.4 G, BID
  3. ROCALTROL [Concomitant]
     Dosage: 0.50 MG, 5 TIMES/WK
  4. MASTICAL [Concomitant]
     Dosage: UNK UNK, TID
  5. CALCIFEDIOL [Concomitant]
     Dosage: 266 MUG, Q2WK
  6. ANTIHYPERTENSIVES [Concomitant]
  7. ANALGESICS [Concomitant]

REACTIONS (5)
  - Hypocalcaemia [Recovered/Resolved]
  - Nausea [Recovered/Resolved]
  - Dizziness [Recovered/Resolved]
  - Tremor [Recovered/Resolved]
  - Asthenia [Recovered/Resolved]
